FAERS Safety Report 17397597 (Version 1)
Quarter: 2020Q1

REPORT INFORMATION
  Report Type: Spontaneous
  Country: US (occurrence: US)
  Receive Date: 20200210
  Receipt Date: 20200210
  Transmission Date: 20200409
  Serious: Yes (Other)
  Sender: FDA-Public Use
  Company Number: US-SAOL THERAPEUTICS-2020SAO00031

PATIENT
  Sex: Male

DRUGS (8)
  1. LIORESAL [Suspect]
     Active Substance: BACLOFEN
     Dosage: 775 ?G/DAY
     Route: 037
  2. GABLOFEN [Suspect]
     Active Substance: BACLOFEN
     Dosage: DOSE INCREASED
     Dates: start: 2017
  3. LIORESAL [Suspect]
     Active Substance: BACLOFEN
     Dosage: UNK
  4. LIORESAL [Suspect]
     Active Substance: BACLOFEN
     Dosage: DOSE INCREASED
     Dates: start: 2018
  5. GABLOFEN [Suspect]
     Active Substance: BACLOFEN
     Dosage: 775 ?G/DAY
     Route: 037
  6. LIORESAL [Suspect]
     Active Substance: BACLOFEN
     Dosage: DOSE INCREASED
     Dates: start: 2017
  7. GABLOFEN [Suspect]
     Active Substance: BACLOFEN
     Dosage: UNK
  8. GABLOFEN [Suspect]
     Active Substance: BACLOFEN
     Dosage: DOSE INCREASED
     Dates: start: 2018

REACTIONS (4)
  - Spinal fusion surgery [Unknown]
  - Complication associated with device [Recovered/Resolved]
  - Device malfunction [Recovered/Resolved]
  - Therapeutic response decreased [Recovered/Resolved]

NARRATIVE: CASE EVENT DATE: 2017
